FAERS Safety Report 20373257 (Version 1)
Quarter: 2022Q1

REPORT INFORMATION
  Report Type: Spontaneous
  Country: US (occurrence: US)
  Receive Date: 20220125
  Receipt Date: 20220125
  Transmission Date: 20220423
  Serious: Yes (Other)
  Sender: FDA-Public Use
  Company Number: US-JNJFOC-20211213970

PATIENT
  Sex: Female

DRUGS (25)
  1. ELMIRON [Suspect]
     Active Substance: PENTOSAN POLYSULFATE SODIUM
     Indication: Cystitis interstitial
     Route: 048
     Dates: start: 199903, end: 20200803
  2. CHLORHEXIDINE [Concomitant]
     Active Substance: CHLORHEXIDINE
     Dates: start: 20150810, end: 20201113
  3. CYCLOBENZAPRINE [Concomitant]
     Active Substance: CYCLOBENZAPRINE
     Indication: Muscle spasms
     Dates: start: 20151117, end: 20201110
  4. VALACYCLOVIR [Concomitant]
     Active Substance: VALACYCLOVIR HYDROCHLORIDE
     Indication: Oral herpes
     Dates: start: 20150120, end: 20201110
  5. PREMPRO [Concomitant]
     Active Substance: ESTROGENS, CONJUGATED\MEDROXYPROGESTERONE ACETATE
     Indication: Blood oestrogen
     Dates: start: 20190723, end: 20201110
  6. ZOLPIDEM [Concomitant]
     Active Substance: ZOLPIDEM TARTRATE
     Indication: Insomnia
     Dates: start: 20150121, end: 20201105
  7. BETHANECHOL [Concomitant]
     Active Substance: BETHANECHOL
     Indication: Urinary retention
     Dates: start: 20150121, end: 20200914
  8. ERGOCALCIFEROL [Concomitant]
     Active Substance: ERGOCALCIFEROL
     Indication: Vitamin supplementation
     Dates: start: 20150413, end: 20200914
  9. ONDANSETRON [Concomitant]
     Active Substance: ONDANSETRON
     Indication: Nausea
     Dates: start: 20150401, end: 20191227
  10. FLUCONAZOLE [Concomitant]
     Active Substance: FLUCONAZOLE
     Indication: Infection
     Dates: start: 20170403, end: 20191122
  11. NYSTATIN [Concomitant]
     Active Substance: NYSTATIN
     Indication: Infection
     Dates: start: 20181011, end: 20191122
  12. AMITRIPTYLINE [Concomitant]
     Active Substance: AMITRIPTYLINE
     Indication: Cystitis interstitial
     Dates: start: 20171129, end: 20180223
  13. CIPROFLOXACIN [Concomitant]
     Active Substance: CIPROFLOXACIN
     Indication: Infection
     Dates: start: 20160119, end: 20171024
  14. ESZOPICLONE [Concomitant]
     Active Substance: ESZOPICLONE
     Indication: Insomnia
     Dates: start: 20170201, end: 20170719
  15. PROGESTERONE [Concomitant]
     Active Substance: PROGESTERONE
     Indication: Blood oestrogen
     Dates: start: 20170222, end: 20170718
  16. PAZEO [Concomitant]
     Active Substance: OLOPATADINE HYDROCHLORIDE
     Indication: Eye pruritus
     Dates: start: 20170205, end: 20170419
  17. CANDESARTAN [Concomitant]
     Active Substance: CANDESARTAN
     Indication: Blood pressure measurement
     Dates: start: 20170215, end: 20170419
  18. METHOCARBAMOL [Concomitant]
     Active Substance: METHOCARBAMOL
     Indication: Myalgia
     Dates: start: 20161026, end: 20170411
  19. GABAPENTIN [Concomitant]
     Active Substance: GABAPENTIN
     Indication: Neuralgia
     Dates: start: 20150514, end: 20150824
  20. ZIANA [Concomitant]
     Active Substance: CLINDAMYCIN PHOSPHATE\TRETINOIN
     Indication: Acne
     Dates: start: 20150701, end: 20150810
  21. IBUPROFEN [Concomitant]
     Active Substance: IBUPROFEN
     Indication: Pain
     Dates: start: 20150623, end: 20181011
  22. CYANOCOBALAMIN [Concomitant]
     Active Substance: CYANOCOBALAMIN
     Indication: Vitamin B complex deficiency
     Dates: start: 20170907, end: 20200420
  23. ACETAMINOPHEN\HYDROCODONE [Concomitant]
     Active Substance: ACETAMINOPHEN\HYDROCODONE
     Indication: Pain
     Dates: start: 20150401, end: 20160418
  24. TEMAZEPAM [Concomitant]
     Active Substance: TEMAZEPAM
     Indication: Insomnia
     Dates: start: 20151008, end: 20170918
  25. PROMETHAZINE [Concomitant]
     Active Substance: PROMETHAZINE HYDROCHLORIDE
     Indication: Nausea
     Dates: start: 20160223, end: 20160609

REACTIONS (3)
  - Maculopathy [Not Recovered/Not Resolved]
  - Migraine [Unknown]
  - Stress [Unknown]
